FAERS Safety Report 20368664 (Version 2)
Quarter: 2022Q1

REPORT INFORMATION
  Report Type: Spontaneous
  Country: US (occurrence: US)
  Receive Date: 20220124
  Receipt Date: 20220210
  Transmission Date: 20220423
  Serious: No
  Sender: FDA-Public Use
  Company Number: US-CELGENE-USA-20220105065

PATIENT
  Sex: Male

DRUGS (3)
  1. REVLIMID [Suspect]
     Active Substance: LENALIDOMIDE
     Indication: Diffuse large B-cell lymphoma
     Dosage: 15 MILLIGRAM
     Route: 048
     Dates: start: 20211228
  2. REVLIMID [Suspect]
     Active Substance: LENALIDOMIDE
     Indication: Off label use
  3. POMALYST [Suspect]
     Active Substance: POMALIDOMIDE
     Indication: Diffuse large B-cell lymphoma
     Dosage: 2 MILLIGRAM
     Route: 048
     Dates: start: 202202

REACTIONS (1)
  - Rash pruritic [Unknown]
